FAERS Safety Report 7235543-9 (Version None)
Quarter: 2011Q1

REPORT INFORMATION
  Report Type: 
  Country: None (occurrence: None)
  Receive Date: 20110120
  Receipt Date: 20110111
  Transmission Date: 20110831
  Serious: Yes (Hospitalization)
  Sender: FDA-Public Use
  Company Number: PHHY2010US84953

PATIENT
  Sex: Female
  Weight: 57 kg

DRUGS (2)
  1. EXJADE [Suspect]
     Indication: MYELODYSPLASTIC SYNDROME
     Dosage: 1500 MG, UNK
     Route: 048
     Dates: start: 20101001
  2. EXJADE [Suspect]
     Dosage: 1000 MG DAILY
     Route: 048

REACTIONS (2)
  - PNEUMONIA [None]
  - BLOOD COUNT ABNORMAL [None]
